FAERS Safety Report 16288287 (Version 2)
Quarter: 2019Q2

REPORT INFORMATION
  Report Type: Spontaneous
  Country: FR (occurrence: FR)
  Receive Date: 20190508
  Receipt Date: 20190526
  Transmission Date: 20190711
  Serious: Yes (Life-Threatening, Other)
  Sender: FDA-Public Use
  Company Number: FR-CELLTRION INC.-2019FR020550

PATIENT

DRUGS (11)
  1. ARACYTINE [Concomitant]
     Active Substance: CYTARABINE
     Indication: CENTRAL NERVOUS SYSTEM LYMPHOMA
     Dosage: AS A FIRST-LINE THERAPY
     Route: 065
  2. OXALIPLATINE [Suspect]
     Active Substance: OXALIPLATIN
     Dosage: 100 MG/M2, RECEIVED SIX CYCLES (ONE CYCLE WAS OF 28 DAYS) FOR R-GEMOX REGIMEN
  3. GEMCITABINE [Suspect]
     Active Substance: GEMCITABINE\GEMCITABINE HYDROCHLORIDE
     Indication: CENTRAL NERVOUS SYSTEM LYMPHOMA
     Dosage: 1000 MG/M2; ADDITIONAL INFO: ADDITIONAL INFO: (R-GEMOX) REGIMEN RECEIVED SIX CYCLES (ONE CYCLE WAS O
     Route: 065
  4. ETOPOSIDE. [Concomitant]
     Active Substance: ETOPOSIDE
  5. METHOTREXATE. [Concomitant]
     Active Substance: METHOTREXATE
     Indication: CENTRAL NERVOUS SYSTEM LYMPHOMA
     Dosage: AS A FIRST-LINE THERAPY
     Route: 065
  6. OXALIPLATINE [Suspect]
     Active Substance: OXALIPLATIN
     Indication: CENTRAL NERVOUS SYSTEM LYMPHOMA
     Dosage: 100 MG/KG
     Route: 065
  7. VINCRISTINE [Concomitant]
     Active Substance: VINCRISTINE
     Indication: CENTRAL NERVOUS SYSTEM LYMPHOMA
     Route: 065
  8. RITUXIMAB (UNKNOWN) [Suspect]
     Active Substance: RITUXIMAB
     Indication: CENTRAL NERVOUS SYSTEM LYMPHOMA
     Dosage: 375 MG/M2, RECEIVED SIX CYCLES (ONE CYCLE WAS OF 28 DAYS), FOR R-GEMOX REGIMEN
     Route: 042
  9. IFOSFAMIDE. [Concomitant]
     Active Substance: IFOSFAMIDE
  10. CARBOPLATINE [Concomitant]
     Active Substance: CARBOPLATIN
  11. PROCARBAZINE [Concomitant]
     Active Substance: PROCARBAZINE
     Indication: CENTRAL NERVOUS SYSTEM LYMPHOMA
     Dosage: AS A FIRST-LINE THERAPY
     Route: 065

REACTIONS (3)
  - Lymphopenia [Unknown]
  - Neuropathy peripheral [Unknown]
  - Thrombocytopenia [Unknown]
